FAERS Safety Report 12234040 (Version 1)
Quarter: 2016Q2

REPORT INFORMATION
  Report Type: Spontaneous
  Country: US (occurrence: None)
  Receive Date: 20160401
  Receipt Date: 20160401
  Transmission Date: 20160815
  Serious: Yes (Hospitalization)
  Sender: FDA-Public Use
  Company Number: None

PATIENT
  Age: 63 Year
  Sex: Male
  Weight: 76.4 kg

DRUGS (13)
  1. LIDOCAINE (XYLOCAINE) [Concomitant]
  2. REGORAFENIB [Suspect]
     Active Substance: REGORAFENIB
     Indication: METASTASIS
     Route: 048
     Dates: start: 20160225, end: 20160328
  3. DOCUSATE [Concomitant]
     Active Substance: DOCUSATE
  4. REGORAFENIB [Suspect]
     Active Substance: REGORAFENIB
     Indication: ADENOCARCINOMA OF COLON
     Route: 048
     Dates: start: 20160225, end: 20160328
  5. LASIX [Concomitant]
     Active Substance: FUROSEMIDE
  6. DIPHENHYDRAMINE (BENADRYL) [Concomitant]
  7. GABAPENTIN. [Concomitant]
     Active Substance: GABAPENTIN
  8. LISINOPRIL-HYDROCHLOROTHIAZIDE [Concomitant]
     Active Substance: HYDROCHLOROTHIAZIDE\LISINOPRIL
  9. LORAZEPAM. [Concomitant]
     Active Substance: LORAZEPAM
  10. ALUM/MAG HYDROX. -SIMETHICONE [Concomitant]
  11. NYSTATIN (MYCOSTATIN) [Concomitant]
  12. LOPERAMIDE [Concomitant]
     Active Substance: LOPERAMIDE
  13. MIRTAZAPINE. [Concomitant]
     Active Substance: MIRTAZAPINE

REACTIONS (2)
  - Colorectal cancer metastatic [None]
  - Metastases to central nervous system [None]

NARRATIVE: CASE EVENT DATE: 20160331
